FAERS Safety Report 8907478 (Version 2)
Quarter: 2014Q1

REPORT INFORMATION
  Report Type: Spontaneous
  Country: US (occurrence: US)
  Receive Date: 20121114
  Receipt Date: 20140314
  Transmission Date: 20141002
  Serious: Yes (Hospitalization, Other)
  Sender: FDA-Public Use
  Company Number: PHHY2012US104380

PATIENT
  Age: 45 Year
  Sex: Female

DRUGS (3)
  1. GEMCITABINE [Suspect]
     Indication: CHOLANGIOCARCINOMA
     Route: 041
  2. OXALIPLATIN [Suspect]
     Indication: CHOLANGIOCARCINOMA
     Route: 041
  3. AVASTIN [Suspect]
     Indication: CHOLANGIOCARCINOMA
     Route: 041

REACTIONS (9)
  - Posterior reversible encephalopathy syndrome [Recovered/Resolved]
  - Hypertension [Recovered/Resolved]
  - Headache [Recovered/Resolved]
  - Grand mal convulsion [Recovered/Resolved]
  - Sinus tachycardia [Recovered/Resolved]
  - Confusional state [Recovered/Resolved]
  - Restlessness [Unknown]
  - Agitation [Recovered/Resolved]
  - Proteinuria [Unknown]
